FAERS Safety Report 12238737 (Version 1)
Quarter: 2016Q2

REPORT INFORMATION
  Report Type: Spontaneous
  Country: US (occurrence: US)
  Receive Date: 20160405
  Receipt Date: 20160405
  Transmission Date: 20160815
  Serious: No
  Sender: FDA-Public Use
  Company Number: US-TEVA-597678USA

PATIENT
  Sex: Female
  Weight: 56.75 kg

DRUGS (1)
  1. WARFARIN [Suspect]
     Active Substance: WARFARIN
     Indication: EMBOLISM
     Route: 065
     Dates: start: 201507

REACTIONS (2)
  - Abdominal pain upper [Unknown]
  - Nausea [Unknown]
